FAERS Safety Report 7681074-1 (Version None)
Quarter: 2011Q3

REPORT INFORMATION
  Report Type: 
  Country: None (occurrence: None)
  Receive Date: 20110809
  Receipt Date: 20110725
  Transmission Date: 20111222
  Serious: Yes (Other)
  Sender: FDA-Public Use
  Company Number: 2011MA002411

PATIENT
  Sex: Female
  Weight: 92.9874 kg

DRUGS (24)
  1. SINGULAIR [Concomitant]
  2. TIZANIDINE HCL [Concomitant]
  3. ZOLPIDEM [Concomitant]
  4. RECLAST [Concomitant]
  5. PROMETHAZINE [Concomitant]
  6. PROPRANOLOL [Concomitant]
  7. FLUCONAZOLE [Concomitant]
  8. AMRIX [Concomitant]
  9. BUTALBITAL ACETAMINOPHEN AND CAFFEINE [Concomitant]
  10. PRILOSEC [Concomitant]
  11. VITAMIN D [Concomitant]
  12. WELLBUTRIN [Concomitant]
  13. ROBAXIN [Concomitant]
  14. APAP-ISOMETHEPTENE-CAFFEINE [Concomitant]
  15. MIRTAZAPINE [Concomitant]
  16. FLEXERIL [Concomitant]
  17. ULTRAM SR [Concomitant]
  18. GABAPENTIN [Concomitant]
  19. AMANTADINE HCL [Concomitant]
  20. METOCLOPRAMIDE [Suspect]
     Indication: PRODUCT USED FOR UNKNOWN INDICATION
     Dosage: 10 MG;PO
     Route: 048
     Dates: start: 20000501, end: 20081201
  21. TOPIRAMATE [Concomitant]
  22. ACETAMINOPHEN W/ CODEINE [Concomitant]
  23. SAVELLA [Concomitant]
  24. TRAZODONE HCL [Concomitant]

REACTIONS (12)
  - TREMOR [None]
  - GAIT DISTURBANCE [None]
  - FAMILY STRESS [None]
  - PARKINSONISM [None]
  - BALANCE DISORDER [None]
  - MIGRAINE [None]
  - FATIGUE [None]
  - DYSARTHRIA [None]
  - TARDIVE DYSKINESIA [None]
  - EMOTIONAL DISORDER [None]
  - INSOMNIA [None]
  - CONDITION AGGRAVATED [None]
